FAERS Safety Report 22314704 (Version 1)
Quarter: 2023Q2

REPORT INFORMATION
  Report Type: Spontaneous
  Country: US (occurrence: US)
  Receive Date: 20230512
  Receipt Date: 20230512
  Transmission Date: 20230722
  Serious: No
  Sender: FDA-Public Use
  Company Number: US-TEVA-2023-US-2887333

PATIENT
  Age: 61 Year
  Sex: Female

DRUGS (1)
  1. OLOPATADINE [Suspect]
     Active Substance: OLOPATADINE
     Indication: Eyelid rash
     Route: 065

REACTIONS (1)
  - Eye infection [Not Recovered/Not Resolved]
